FAERS Safety Report 5029081-1 (Version None)
Quarter: 2006Q2

REPORT INFORMATION
  Report Type: 
  Country: None (occurrence: None)
  Receive Date: 20060613
  Receipt Date: 20060606
  Transmission Date: 20061013
  Serious: Yes (Hospitalization)
  Sender: FDA-Public Use
  Company Number: 200612325GDS

PATIENT
  Age: 41 Year
  Sex: Female
  Weight: 70 kg

DRUGS (1)
  1. AVELOX [Suspect]
     Indication: ACUTE SINUSITIS
     Dosage: 400 MG, QD, ORAL
     Route: 048
     Dates: start: 20060331, end: 20060404

REACTIONS (14)
  - ANGINA PECTORIS [None]
  - CARDIAC FAILURE [None]
  - CHEST DISCOMFORT [None]
  - DYSPNOEA [None]
  - DYSPNOEA AT REST [None]
  - EYE OEDEMA [None]
  - HEPATOCELLULAR DAMAGE [None]
  - OEDEMA PERIPHERAL [None]
  - ORTHOPNOEA [None]
  - PLEURAL EFFUSION [None]
  - PRURITUS [None]
  - TACHYCARDIA [None]
  - THROMBOCYTHAEMIA [None]
  - WEIGHT INCREASED [None]
